FAERS Safety Report 13519890 (Version 2)
Quarter: 2017Q3

REPORT INFORMATION
  Report Type: Report from Study
  Country: None (occurrence: US)
  Receive Date: 20170506
  Receipt Date: 20170712
  Transmission Date: 20171127
  Serious: Yes (Other)
  Sender: FDA-Public Use
  Company Number: US-ABBVIE-17K-163-1959807-00

PATIENT
  Sex: Female

DRUGS (1)
  1. HUMIRA [Suspect]
     Active Substance: ADALIMUMAB
     Indication: RHEUMATOID ARTHRITIS
     Route: 058
     Dates: start: 20170323

REACTIONS (15)
  - Joint range of motion decreased [Unknown]
  - Thrombosis [Unknown]
  - Hyperhidrosis [Not Recovered/Not Resolved]
  - Rheumatoid arthritis [Unknown]
  - Wound infection [Recovering/Resolving]
  - Asthenia [Not Recovered/Not Resolved]
  - Fatigue [Not Recovered/Not Resolved]
  - Nerve compression [Not Recovered/Not Resolved]
  - Stress [Unknown]
  - Blindness [Recovering/Resolving]
  - Hypertension [Unknown]
  - Injection site pain [Recovering/Resolving]
  - Weight increased [Not Recovered/Not Resolved]
  - Dizziness [Unknown]
  - Balance disorder [Unknown]

NARRATIVE: CASE EVENT DATE: 2017
